FAERS Safety Report 4471785-3 (Version None)
Quarter: 2004Q4

REPORT INFORMATION
  Report Type: 
  Country: None (occurrence: None)
  Receive Date: 20041006
  Receipt Date: 20040921
  Transmission Date: 20050328
  Serious: Yes (Hospitalization, Other)
  Sender: FDA-Public Use
  Company Number: 200410197BSV

PATIENT
  Age: 81 Year
  Sex: Female

DRUGS (11)
  1. CIPROFLOXACIN [Suspect]
     Indication: CYSTITIS
     Dosage: ORAL
     Route: 048
     Dates: start: 20040501
  2. FURESIS [Concomitant]
  3. SPIRESIS [Concomitant]
  4. SPECICOR/OLD FORM [Concomitant]
  5. DIGOXIN [Concomitant]
  6. COZAAR [Concomitant]
  7. ORMOX [Concomitant]
  8. OPAMOX [Concomitant]
  9. TIMOLOL MALEATE [Concomitant]
  10. MAREVAN [Concomitant]
  11. ALTARAX [Concomitant]

REACTIONS (3)
  - ANAEMIA [None]
  - RASH [None]
  - VASCULAR PURPURA [None]
